FAERS Safety Report 21547031 (Version 1)
Quarter: 2022Q4

REPORT INFORMATION
  Report Type: Spontaneous
  Country: US (occurrence: None)
  Receive Date: 20221101
  Receipt Date: 20221101
  Transmission Date: 20230113
  Serious: No
  Sender: FDA-Public Use
  Company Number: None

PATIENT
  Age: 45 Year
  Sex: Female
  Weight: 50.8 kg

DRUGS (3)
  1. MODAFINIL [Suspect]
     Active Substance: MODAFINIL
     Indication: Narcolepsy
     Dates: start: 202206, end: 202209
  2. ARMODAFINIL [Suspect]
     Active Substance: ARMODAFINIL
     Indication: Narcolepsy
     Dates: start: 202206, end: 202209
  3. SUNOSI [Suspect]
     Active Substance: SOLRIAMFETOL

REACTIONS (3)
  - Headache [None]
  - Fatigue [None]
  - Therapy non-responder [None]

NARRATIVE: CASE EVENT DATE: 20220927
